FAERS Safety Report 22601973 (Version 2)
Quarter: 2023Q2

REPORT INFORMATION
  Report Type: Report from Study
  Country: US (occurrence: US)
  Receive Date: 20230614
  Receipt Date: 20230623
  Transmission Date: 20230722
  Serious: No
  Sender: FDA-Public Use
  Company Number: US-002147023-NVSC2023US129408

PATIENT
  Sex: Male

DRUGS (15)
  1. OMEPRAZOLE [Suspect]
     Active Substance: OMEPRAZOLE
     Indication: Psoriasis
     Dosage: UNK
     Route: 065
  2. TRAZODONE [Suspect]
     Active Substance: TRAZODONE HYDROCHLORIDE
     Indication: Psoriasis
     Dosage: UNK
     Route: 065
  3. DULOXETINE [Suspect]
     Active Substance: DULOXETINE
     Indication: Psoriasis
     Dosage: UNK
     Route: 065
  4. OXCARBAZEPINE [Suspect]
     Active Substance: OXCARBAZEPINE
     Indication: Psoriasis
     Dosage: UNK
     Route: 065
  5. RANITIDINE [Suspect]
     Active Substance: RANITIDINE
     Indication: Psoriasis
     Dosage: UNK
     Route: 065
  6. ESCITALOPRAM [Suspect]
     Active Substance: ESCITALOPRAM OXALATE
     Indication: Psoriasis
     Dosage: UNK
     Route: 065
  7. MINOCYCLINE [Suspect]
     Active Substance: MINOCYCLINE HYDROCHLORIDE
     Indication: Psoriasis
     Dosage: UNK
     Route: 065
  8. DIVALPROEX SODIUM [Suspect]
     Active Substance: DIVALPROEX SODIUM
     Indication: Product used for unknown indication
     Dosage: UNK
     Route: 065
  9. VITAMIN B12 [Suspect]
     Active Substance: CYANOCOBALAMIN
     Indication: Psoriasis
     Dosage: UNK
     Route: 065
  10. FOLIC ACID [Suspect]
     Active Substance: FOLIC ACID
     Indication: Psoriasis
     Dosage: UNK
     Route: 065
  11. IRON [Suspect]
     Active Substance: IRON
     Indication: Psoriasis
     Dosage: UNK
     Route: 065
  12. CLOBAZAM [Suspect]
     Active Substance: CLOBAZAM
     Indication: Psoriasis
     Dosage: UNK
     Route: 065
  13. ARIPIPRAZOLE [Suspect]
     Active Substance: ARIPIPRAZOLE
     Indication: Psoriasis
     Dosage: UNK
     Route: 065
  14. ACETAMINOPHEN [Suspect]
     Active Substance: ACETAMINOPHEN
     Indication: Psoriasis
     Dosage: UNK
     Route: 065
  15. LEVOTHYROXINE [Suspect]
     Active Substance: LEVOTHYROXINE
     Indication: Psoriasis
     Dosage: UNK
     Route: 065

REACTIONS (4)
  - Erythema [Unknown]
  - Skin exfoliation [Unknown]
  - Psoriasis [Unknown]
  - Drug ineffective for unapproved indication [Unknown]
